FAERS Safety Report 13717157 (Version 3)
Quarter: 2018Q4

REPORT INFORMATION
  Report Type: Report from Study
  Country: CR (occurrence: CR)
  Receive Date: 20170705
  Receipt Date: 20181130
  Transmission Date: 20190204
  Serious: Yes (Other)
  Sender: FDA-Public Use
  Company Number: PHHY2016CR183377

PATIENT
  Age: 47 Year
  Sex: Female

DRUGS (1)
  1. TASIGNA [Suspect]
     Active Substance: NILOTINIB
     Indication: CHRONIC MYELOID LEUKAEMIA
     Dosage: 800 MG, DAILY (STARTED 2 YEARS AGO)
     Route: 065

REACTIONS (9)
  - Skin fissures [Unknown]
  - Nasopharyngitis [Unknown]
  - Asphyxia [Unknown]
  - Neck pain [Unknown]
  - Toothache [Unknown]
  - Feeling hot [Unknown]
  - Ovulation pain [Unknown]
  - Hot flush [Unknown]
  - Bone pain [Unknown]
